FAERS Safety Report 21477288 (Version 1)
Quarter: 2022Q4

REPORT INFORMATION
  Report Type: Spontaneous
  Country: US (occurrence: US)
  Receive Date: 20221019
  Receipt Date: 20221019
  Transmission Date: 20230113
  Serious: No
  Sender: FDA-Public Use
  Company Number: US-ALLERGAN-2207407US

PATIENT
  Sex: Male

DRUGS (3)
  1. LINZESS [Suspect]
     Active Substance: LINACLOTIDE
     Indication: Irritable bowel syndrome
     Dosage: 290 ?G
  2. LINZESS [Suspect]
     Active Substance: LINACLOTIDE
     Dosage: 145 ?G
  3. LINZESS [Suspect]
     Active Substance: LINACLOTIDE
     Dosage: 290 ?G

REACTIONS (8)
  - Weight decreased [Unknown]
  - Malaise [Unknown]
  - Bowel movement irregularity [Unknown]
  - Bladder pain [Unknown]
  - Abnormal faeces [Unknown]
  - Expired product administered [Unknown]
  - Diarrhoea [Unknown]
  - Drug ineffective [Unknown]
